FAERS Safety Report 25270192 (Version 4)
Quarter: 2025Q2

REPORT INFORMATION
  Report Type: Spontaneous
  Country: US (occurrence: US)
  Receive Date: 20250505
  Receipt Date: 20250617
  Transmission Date: 20250717
  Serious: No
  Sender: PFIZER
  Company Number: US-PFIZER INC-202500093697

PATIENT
  Age: 63 Year
  Sex: Female

DRUGS (3)
  1. IBRANCE [Suspect]
     Active Substance: PALBOCICLIB
     Route: 048
     Dates: start: 20250430
  2. IBRANCE [Suspect]
     Active Substance: PALBOCICLIB
     Route: 048
  3. ANASTROZOLE [Concomitant]
     Active Substance: ANASTROZOLE

REACTIONS (4)
  - Vomiting [Recovered/Resolved]
  - White blood cell count decreased [Unknown]
  - Night sweats [Unknown]
  - Insomnia [Unknown]

NARRATIVE: CASE EVENT DATE: 20250101
